FAERS Safety Report 4939468-0 (Version None)
Quarter: 2006Q1

REPORT INFORMATION
  Report Type: 
  Country: None (occurrence: None)
  Receive Date: 20060306
  Receipt Date: 20060221
  Transmission Date: 20060701
  Serious: Yes (Hospitalization)
  Sender: FDA-Public Use
  Company Number: NZ200602005046

PATIENT
  Age: 52 Year
  Sex: Female

DRUGS (3)
  1. ZYPREXA [Suspect]
     Indication: MAJOR DEPRESSION
     Dosage: 30 MG, DAILY (1/D), ORAL
     Route: 048
     Dates: start: 20030101
  2. TEGRETOL [Concomitant]
  3. PAROXETINE HCL [Concomitant]

REACTIONS (7)
  - BLOOD CREATININE INCREASED [None]
  - FLUID INTAKE REDUCED [None]
  - MUTISM [None]
  - NEUROLEPTIC MALIGNANT SYNDROME [None]
  - ORAL INTAKE REDUCED [None]
  - TACHYCARDIA [None]
  - WHITE BLOOD CELL COUNT INCREASED [None]
